FAERS Safety Report 17579658 (Version 2)
Quarter: 2020Q2

REPORT INFORMATION
  Report Type: Spontaneous
  Country: AT (occurrence: AT)
  Receive Date: 20200325
  Receipt Date: 20200427
  Transmission Date: 20200713
  Serious: Yes (Death, Hospitalization, Other)
  Sender: FDA-Public Use
  Company Number: AT-CELLTRION INC.-2020AT020846

PATIENT

DRUGS (9)
  1. PREDNISOLONE. [Concomitant]
     Active Substance: PREDNISOLONE
     Indication: HAEMOPHAGOCYTIC LYMPHOHISTIOCYTOSIS
     Dosage: } 1 MG/KG
     Route: 065
  2. ANAKINRA [Suspect]
     Active Substance: ANAKINRA
     Indication: HAEMOPHAGOCYTIC LYMPHOHISTIOCYTOSIS
     Dosage: FROM DAY 3 POST HLH DIAGNOSIS, ABSOLUTE DOSE OF 100- 200MG 3X DAILY
     Route: 065
  3. CYCLOPHOSPHAMIDE. [Suspect]
     Active Substance: CYCLOPHOSPHAMIDE
     Indication: ANTISYNTHETASE SYNDROME
     Dosage: ON DAY 14 POST HLH DIAGNOSIS
     Route: 065
  4. GANCICLOVIR. [Suspect]
     Active Substance: GANCICLOVIR
     Indication: CYTOMEGALOVIRUS INFECTION
     Route: 065
  5. KINERET [Suspect]
     Active Substance: ANAKINRA
     Indication: HAEMOPHAGOCYTIC LYMPHOHISTIOCYTOSIS
     Dosage: 18 MG/KG, QD
     Route: 058
  6. RITUXIMAB (UNKNOWN) [Suspect]
     Active Substance: RITUXIMAB
     Indication: ANTISYNTHETASE SYNDROME
     Dosage: ON DAY 8 AND 15 POST HLH DIAGNOSIS
     Route: 065
  7. KINERET [Suspect]
     Active Substance: ANAKINRA
     Dosage: 100-200 MG THREE TIMES DAILY.
     Route: 058
  8. PREDNISOLONE. [Concomitant]
     Active Substance: PREDNISOLONE
     Dosage: STARTED WITH A DAILY DOSE OF 500 MG FOR 3 DAYS, 250 MG FOR 3 DAYS, 100 MG FOR 3 DAYS, AND THEN CONTI
  9. IMMUNOGLOBULIN HUMAN NORMAL [Suspect]
     Active Substance: HUMAN IMMUNOGLOBULIN G
     Indication: HAEMOPHAGOCYTIC LYMPHOHISTIOCYTOSIS
     Dosage: 0.5-1 G/KG FOR 3-6 DAYS.
     Route: 042

REACTIONS (10)
  - Nosocomial infection [Unknown]
  - Infection [Fatal]
  - Infection in an immunocompromised host [Fatal]
  - Product use in unapproved indication [Unknown]
  - Transplant rejection [Fatal]
  - Disease progression [Recovered/Resolved]
  - Vascular device infection [Unknown]
  - Clostridium difficile colitis [Unknown]
  - Off label use [Unknown]
  - Restrictive pulmonary disease [Unknown]
